FAERS Safety Report 7635609-5 (Version None)
Quarter: 2011Q3

REPORT INFORMATION
  Report Type: 
  Country: None (occurrence: None)
  Receive Date: 20110726
  Receipt Date: 20110714
  Transmission Date: 20111222
  Serious: Yes (Other)
  Sender: FDA-Public Use
  Company Number: PHHY2011DE63511

PATIENT

DRUGS (1)
  1. RASILEZ AMLO [Suspect]
     Dosage: UNK UKN, UNK

REACTIONS (1)
  - OEDEMA [None]
